FAERS Safety Report 8128484-6 (Version None)
Quarter: 2012Q1

REPORT INFORMATION
  Report Type: 
  Country: None (occurrence: None)
  Receive Date: 20120210
  Receipt Date: 20120127
  Transmission Date: 20120608
  Serious: Yes (Death, Hospitalization, Other)
  Sender: FDA-Public Use
  Company Number: BR-ROCHE-718967

PATIENT
  Sex: Male
  Weight: 68 kg

DRUGS (5)
  1. MABTHERA [Suspect]
  2. ACETAMINOPHEN [Concomitant]
  3. METHOTREXATE [Concomitant]
  4. MABTHERA [Suspect]
     Indication: RHEUMATOID ARTHRITIS
     Route: 042
     Dates: start: 20100701, end: 20100701
  5. HYDROCHLOROTHIAZIDE [Concomitant]

REACTIONS (8)
  - MYOCARDIAL INFARCTION [None]
  - RHEUMATIC FEVER [None]
  - CARDIAC FAILURE ACUTE [None]
  - DRUG INEFFECTIVE [None]
  - MUSCULOSKELETAL PAIN [None]
  - ARTHRALGIA [None]
  - CARDIOGENIC SHOCK [None]
  - BLOOD GLUCOSE INCREASED [None]
